FAERS Safety Report 20834140 (Version 1)
Quarter: 2022Q2

REPORT INFORMATION
  Report Type: Spontaneous
  Country: CH (occurrence: None)
  Receive Date: 20220514
  Receipt Date: 20220514
  Transmission Date: 20220721
  Serious: No
  Sender: FDA-Public Use
  Company Number: None

PATIENT
  Age: 43 Year
  Sex: Female
  Weight: 61.3 kg

DRUGS (1)
  1. EMGALITY [Suspect]
     Active Substance: GALCANEZUMAB-GNLM
     Dosage: OTHER FREQUENCY : ONCE A MONTH;?OTHER ROUTE : INJECTION UNDER THE SKIN;?
     Route: 050
     Dates: start: 20220210

REACTIONS (2)
  - Weight increased [None]
  - Constipation [None]
